FAERS Safety Report 25090739 (Version 1)
Quarter: 2025Q1

REPORT INFORMATION
  Report Type: Spontaneous
  Country: CA (occurrence: CA)
  Receive Date: 20250318
  Receipt Date: 20250318
  Transmission Date: 20250409
  Serious: Yes (Hospitalization)
  Sender: BAYER HEALTHCARE LLC
  Company Number: CA-BAYER-2025A034596

PATIENT
  Age: 92 Year
  Sex: Male

DRUGS (9)
  1. NAPROXEN SODIUM [Suspect]
     Active Substance: NAPROXEN SODIUM
  2. ASPIRIN [Suspect]
     Active Substance: ASPIRIN
  3. NIFEDIPINE [Concomitant]
     Active Substance: NIFEDIPINE
  4. PANTOPRAZOLE [Concomitant]
     Active Substance: PANTOPRAZOLE
  5. PERINDOPRIL [Concomitant]
     Active Substance: PERINDOPRIL
  6. PREDNISONE [Concomitant]
     Active Substance: PREDNISONE
  7. TRAZODONE [Concomitant]
     Active Substance: TRAZODONE HYDROCHLORIDE
  8. WIXELA INHUB [Concomitant]
     Active Substance: FLUTICASONE PROPIONATE\SALMETEROL XINAFOATE
     Route: 045
  9. SILODOSIN [Concomitant]
     Active Substance: SILODOSIN

REACTIONS (3)
  - Haematochezia [Not Recovered/Not Resolved]
  - Dizziness [Not Recovered/Not Resolved]
  - Transfusion [Not Recovered/Not Resolved]
